FAERS Safety Report 4952927-X (Version None)
Quarter: 2006Q1

REPORT INFORMATION
  Report Type: 
  Country: None (occurrence: None)
  Receive Date: 20060320
  Receipt Date: 20060309
  Transmission Date: 20060701
  Serious: Yes (Hospitalization)
  Sender: FDA-Public Use
  Company Number: CHPA2006US02712

PATIENT
  Age: 65 Year
  Sex: Female
  Weight: 70.3 kg

DRUGS (7)
  1. WALMART/EQUATE STEP 1 21 MG (NCH) (NICOTINE) [Suspect]
     Indication: SMOKING CESSATION THERAPY
     Dosage: 21 MG QD TRANSDERMAL
     Route: 062
     Dates: start: 20060109, end: 20060112
  2. CARDIZEM CD [Concomitant]
  3. ASPIRIN [Concomitant]
  4. COMPAZINE (PROCHLORPERAZONE EDISYLATE) [Concomitant]
  5. REGLAN (METOCLOPRAMIDE EDISYLATE) [Concomitant]
  6. DILAUDID [Concomitant]
  7. CHEMOTHERAPEUTICS, OTHER (CHEMOTHERAPEUTICS, OTHER) [Concomitant]

REACTIONS (3)
  - HEADACHE [None]
  - PALPITATIONS [None]
  - PNEUMONIA [None]
